FAERS Safety Report 8426558-3 (Version None)
Quarter: 2012Q2

REPORT INFORMATION
  Report Type: 
  Country: None (occurrence: None)
  Receive Date: 20120611
  Receipt Date: 20120605
  Transmission Date: 20120825
  Serious: Yes (Other)
  Sender: FDA-Public Use
  Company Number: BR-SANOFI-AVENTIS-2012SA040157

PATIENT
  Sex: Female

DRUGS (6)
  1. BISOPROLOL FUMARATE [Concomitant]
     Dosage: START DATE: 2 YEARS AGOSTRENGTH: 5MG
     Route: 048
     Dates: start: 20100101
  2. METFORMIN HCL [Concomitant]
     Dosage: START DATE: 2 YEARS AGOSTRENGTH: 500MG
     Route: 048
     Dates: start: 20100101
  3. LANTUS [Suspect]
     Indication: TYPE 2 DIABETES MELLITUS
     Route: 058
     Dates: start: 20080101
  4. CRESTOR [Concomitant]
     Dosage: START DATE: 2 YEARS AGOSTRENGTH: 5MG
     Route: 048
     Dates: start: 20100101
  5. DIOVAN [Concomitant]
     Dosage: START DATE: 2 YEARS AGOSTRENGTH: 160MG
     Route: 048
     Dates: start: 20100101
  6. SOLOSTAR [Suspect]
     Indication: DEVICE THERAPY
     Dates: start: 20080101

REACTIONS (3)
  - CARDIOVASCULAR INSUFFICIENCY [None]
  - RASH MACULAR [None]
  - INJECTION SITE PAIN [None]
